FAERS Safety Report 8104861-4 (Version None)
Quarter: 2012Q1

REPORT INFORMATION
  Report Type: 
  Country: None (occurrence: None)
  Receive Date: 20120201
  Receipt Date: 20120123
  Transmission Date: 20120608
  Serious: Yes (Other)
  Sender: FDA-Public Use
  Company Number: DE-ASTRAZENECA-2012SE02814

PATIENT
  Age: 67 Year
  Sex: Male
  Weight: 88 kg

DRUGS (1)
  1. MEPIVACAINE HYDROCHLORIDE [Suspect]
     Indication: NERVE BLOCK
     Route: 050
     Dates: start: 20120112, end: 20120112

REACTIONS (7)
  - VERTIGO [None]
  - BALANCE DISORDER [None]
  - BLOOD PRESSURE INCREASED [None]
  - DYSARTHRIA [None]
  - BRADYCARDIA [None]
  - INJECTION SITE HAEMATOMA [None]
  - DISTURBANCE IN ATTENTION [None]
